FAERS Safety Report 8246863-3 (Version None)
Quarter: 2012Q1

REPORT INFORMATION
  Report Type: 
  Country: None (occurrence: None)
  Receive Date: 20120330
  Receipt Date: 20120322
  Transmission Date: 20120608
  Serious: Yes (Death)
  Sender: FDA-Public Use
  Company Number: US-ROXANE LABORATORIES, INC.-2012-EU-01670GD

PATIENT

DRUGS (7)
  1. CODEINE [Suspect]
  2. CHLORPHENIRAMINE MALEATE [Suspect]
  3. PROMETHAZINE [Suspect]
  4. PAROXETINE [Suspect]
  5. METHADONE HCL [Suspect]
  6. DIAZEPAM [Suspect]
  7. VERAPAMIL [Suspect]

REACTIONS (1)
  - MULTIPLE DRUG OVERDOSE [None]
